FAERS Safety Report 4685000-9 (Version None)
Quarter: 2005Q2

REPORT INFORMATION
  Report Type: 
  Country: None (occurrence: None)
  Receive Date: 20050608
  Receipt Date: 20050527
  Transmission Date: 20051028
  Serious: Yes (Hospitalization)
  Sender: FDA-Public Use
  Company Number: NSADSS2003003008

PATIENT
  Age: 73 Year
  Sex: Male

DRUGS (2)
  1. REMICADE [Suspect]
     Route: 041
     Dates: start: 20010401
  2. REMICADE [Suspect]
     Indication: RHEUMATOID ARTHRITIS
     Route: 041
     Dates: start: 20010401

REACTIONS (1)
  - MENINGITIS LISTERIA [None]
